FAERS Safety Report 10163912 (Version 2)
Quarter: 2014Q2

REPORT INFORMATION
  Report Type: Spontaneous
  Country: US (occurrence: US)
  Receive Date: 20140510
  Receipt Date: 20140527
  Transmission Date: 20141212
  Serious: Yes (Hospitalization, Other)
  Sender: FDA-Public Use
  Company Number: US-009507513-1405USA003593

PATIENT
  Sex: Male

DRUGS (2)
  1. IMPLANON [Suspect]
     Indication: CONTRACEPTION
     Dosage: UNK
     Route: 064
     Dates: start: 20110422, end: 20130402
  2. METHADONE HYDROCHLORIDE [Concomitant]
     Dosage: 100 MG, QD
     Route: 064

REACTIONS (3)
  - Convulsion [Unknown]
  - Withdrawal syndrome [Unknown]
  - Foetal exposure during pregnancy [Unknown]
